FAERS Safety Report 7561300-X (Version None)
Quarter: 2011Q2

REPORT INFORMATION
  Report Type: 
  Country: None (occurrence: None)
  Receive Date: 20110621
  Receipt Date: 20110215
  Transmission Date: 20111010
  Serious: No
  Sender: FDA-Public Use
  Company Number: US-ASTRAZENECA-2011SE08864

PATIENT
  Age: 83 Year
  Sex: Female
  Weight: 66.2 kg

DRUGS (3)
  1. PULMICORT FLEXHALER [Suspect]
     Route: 055
  2. SIMVASTATIN [Concomitant]
  3. ATENOLOL [Concomitant]

REACTIONS (2)
  - CHEST DISCOMFORT [None]
  - RASH [None]
